FAERS Safety Report 7399559-4 (Version None)
Quarter: 2011Q2

REPORT INFORMATION
  Report Type: 
  Country: None (occurrence: None)
  Receive Date: 20110407
  Receipt Date: 20110316
  Transmission Date: 20111010
  Serious: Yes (Other)
  Sender: FDA-Public Use
  Company Number: US-BAYER-200929936NA

PATIENT
  Sex: Male

DRUGS (4)
  1. BETASERON [Suspect]
     Dosage: 2 MIU, QOD
     Route: 058
     Dates: start: 20090811, end: 20091109
  2. BETASERON [Suspect]
     Dosage: UNK
     Dates: start: 20100830, end: 20101218
  3. BETASERON [Suspect]
     Dosage: UNK
     Dates: start: 20091218, end: 20100217
  4. BETASERON [Suspect]
     Indication: RELAPSING-REMITTING MULTIPLE SCLEROSIS
     Route: 058
     Dates: start: 20090305, end: 20090323

REACTIONS (4)
  - SUICIDAL IDEATION [None]
  - FALL [None]
  - FIBULA FRACTURE [None]
  - DEPRESSION [None]
